FAERS Safety Report 14215784 (Version 2)
Quarter: 2018Q1

REPORT INFORMATION
  Report Type: Spontaneous
  Country: US (occurrence: US)
  Receive Date: 20171122
  Receipt Date: 20180314
  Transmission Date: 20180508
  Serious: No
  Sender: FDA-Public Use
  Company Number: US-BAYER-2017-225496

PATIENT
  Age: 77 Year
  Sex: Female
  Weight: 54 kg

DRUGS (3)
  1. MIRALAX [Suspect]
     Active Substance: POLYETHYLENE GLYCOL 3350
     Indication: GASTROINTESTINAL DISORDER
     Dosage: UNK (2.5 DOSES DAILY AT 7AM DOSE)
     Route: 048
     Dates: start: 201710
  2. MIRALAX [Suspect]
     Active Substance: POLYETHYLENE GLYCOL 3350
     Indication: GASTROINTESTINAL DISORDER
     Dosage: UNK (2 DOSES DAILY AT 7AM DOSE)
     Route: 048
  3. MIRALAX [Suspect]
     Active Substance: POLYETHYLENE GLYCOL 3350
     Indication: GASTROINTESTINAL DISORDER
     Dosage: UNK
     Route: 048
     Dates: start: 201710

REACTIONS (7)
  - Incorrect drug administration duration [Unknown]
  - Frequent bowel movements [Recovered/Resolved]
  - Product prescribing issue [Unknown]
  - Infrequent bowel movements [Recovered/Resolved]
  - Drug ineffective [Unknown]
  - Inappropriate schedule of drug administration [Unknown]
  - Incorrect dosage administered [Unknown]

NARRATIVE: CASE EVENT DATE: 201710
